FAERS Safety Report 5146334-7 (Version None)
Quarter: 2006Q4

REPORT INFORMATION
  Report Type: 
  Country: None (occurrence: None)
  Receive Date: 20061108
  Receipt Date: 20060901
  Transmission Date: 20070319
  Serious: Yes (Other)
  Sender: FDA-Public Use
  Company Number: IE-BRISTOL-MYERS SQUIBB COMPANY-13496799

PATIENT
  Age: 20 Year
  Sex: Female
  Weight: 57 kg

DRUGS (1)
  1. KENALOG-40 [Suspect]
     Indication: SEASONAL ALLERGY
     Route: 030
     Dates: start: 20060501

REACTIONS (2)
  - FAT NECROSIS [None]
  - INJECTION SITE FIBROSIS [None]
